FAERS Safety Report 8576654 (Version 3)
Quarter: 2014Q1

REPORT INFORMATION
  Report Type: Spontaneous
  Country: US (occurrence: None)
  Receive Date: 20120323
  Receipt Date: 20140306
  Transmission Date: 20141002
  Serious: Yes (Hospitalization, Other)
  Sender: FDA-Public Use
  Company Number: 163-21880-11071400

PATIENT
  Age: 78 Year
  Sex: Female

DRUGS (6)
  1. REVLIMID [Suspect]
     Indication: PLASMA CELL MYELOMA
     Dosage: 25 MG,  21 IN 21 D, PO
     Route: 048
     Dates: start: 20100129, end: 201108
  2. METOPROLOL TARTRATE [Suspect]
     Indication: PRODUCT USED FOR UNKNOWN INDICATION
  3. ASA (ACETYLSALICYLIC ACID) [Concomitant]
  4. DEXAMETHOSONE [Concomitant]
  5. SYNTHROID [Concomitant]
  6. BOTOX (BOTULINUM TOXIN TYPE A) [Concomitant]

REACTIONS (7)
  - Pulmonary embolism [None]
  - Dyspnoea [None]
  - Purpura [None]
  - Feeling cold [None]
  - Fatigue [None]
  - Thrombosis [None]
  - Diarrhoea [None]
